FAERS Safety Report 6299950-3 (Version None)
Quarter: 2009Q3

REPORT INFORMATION
  Report Type: 
  Country: None (occurrence: None)
  Receive Date: 20090806
  Receipt Date: 20090729
  Transmission Date: 20100115
  Serious: Yes (Other)
  Sender: FDA-Public Use
  Company Number: CR-WYE-H10408809

PATIENT
  Sex: Female

DRUGS (1)
  1. PANTECTA [Suspect]
     Dosage: 40 MG, FREQUENCY UNKNOWN
     Route: 048

REACTIONS (1)
  - HIP FRACTURE [None]
